FAERS Safety Report 24613825 (Version 1)
Quarter: 2024Q4

REPORT INFORMATION
  Report Type: Spontaneous
  Country: US (occurrence: None)
  Receive Date: 20241113
  Receipt Date: 20241113
  Transmission Date: 20250115
  Serious: Yes (Life-Threatening, Hospitalization)
  Sender: Public
  Company Number: None

PATIENT
  Age: 79 Year
  Sex: Female
  Weight: 89.9 kg

DRUGS (1)
  1. MEROPENEM [Suspect]
     Active Substance: MEROPENEM
     Indication: Urinary tract infection
     Dosage: 1 G GRM  ONE TIME INTRAVENOUS BOLUS ?
     Route: 040
     Dates: start: 20241109, end: 20241109

REACTIONS (2)
  - Respiratory arrest [None]
  - Injection related reaction [None]

NARRATIVE: CASE EVENT DATE: 20241109
